FAERS Safety Report 7291711-1 (Version None)
Quarter: 2011Q1

REPORT INFORMATION
  Report Type: 
  Country: None (occurrence: None)
  Receive Date: 20110214
  Receipt Date: 20110204
  Transmission Date: 20110831
  Serious: Yes (Other)
  Sender: FDA-Public Use
  Company Number: BR-PFIZER INC-2010181050

PATIENT
  Age: 33 Year
  Sex: Female
  Weight: 86 kg

DRUGS (5)
  1. DEPO-PROVERA [Suspect]
     Indication: UTERINE LEIOMYOMA
  2. SERTRALINE [Concomitant]
     Dosage: 50 MG, UNK
     Dates: start: 20090101
  3. RIVOTRIL [Concomitant]
     Dosage: 2 MG, UNK
     Dates: start: 20090101
  4. DEPO-PROVERA [Suspect]
     Indication: VAGINAL HAEMORRHAGE
  5. DEPO-PROVERA [Suspect]
     Indication: OFF LABEL USE
     Dosage: 150 MG, UNK
     Route: 030
     Dates: start: 20070522, end: 20100601

REACTIONS (5)
  - WEIGHT INCREASED [None]
  - ABDOMINAL DISTENSION [None]
  - MENSTRUATION IRREGULAR [None]
  - INAPPROPRIATE SCHEDULE OF DRUG ADMINISTRATION [None]
  - HYPERTENSION [None]
